FAERS Safety Report 18082494 (Version 3)
Quarter: 2020Q4

REPORT INFORMATION
  Report Type: Report from Study
  Country: None (occurrence: US)
  Receive Date: 20200729
  Receipt Date: 20201031
  Transmission Date: 20210113
  Serious: Yes (Other)
  Sender: FDA-Public Use
  Company Number: US-ABBVIE-20K-163-3499029-00

PATIENT
  Sex: Male

DRUGS (1)
  1. HUMIRA [Suspect]
     Active Substance: ADALIMUMAB
     Indication: CROHN^S DISEASE
     Route: 058

REACTIONS (6)
  - Foot fracture [Not Recovered/Not Resolved]
  - Calcinosis [Unknown]
  - Post procedural complication [Unknown]
  - Foot fracture [Unknown]
  - Limb mass [Unknown]
  - Pain in extremity [Unknown]
